FAERS Safety Report 5940214-2 (Version None)
Quarter: 2008Q4

REPORT INFORMATION
  Report Type: 
  Country: None (occurrence: None)
  Receive Date: 20081104
  Receipt Date: 20081022
  Transmission Date: 20090506
  Serious: Yes (Hospitalization)
  Sender: FDA-Public Use
  Company Number: BR-ELI_LILLY_AND_COMPANY-BR200810005525

PATIENT
  Sex: Female
  Weight: 62 kg

DRUGS (7)
  1. FORTEO [Suspect]
     Indication: OSTEOPOROSIS
     Dosage: 20 UG, DAILY (1/D)
     Route: 058
     Dates: end: 20081011
  2. AMIODARONE HCL [Concomitant]
     Indication: ARRHYTHMIA
     Dosage: UNK, UNKNOWN
     Route: 065
  3. DIGOXIN [Concomitant]
     Indication: ARRHYTHMIA
     Dosage: UNK, UNKNOWN
     Route: 065
  4. SUSTRATE [Concomitant]
     Dosage: UNK, UNKNOWN
     Route: 065
  5. CAPTOPRIL [Concomitant]
     Indication: HYPERTENSION
     Dosage: UNK, UNKNOWN
     Route: 065
  6. PHENOBARBITAL TAB [Concomitant]
     Dosage: UNK, UNKNOWN
     Route: 065
  7. CLONAZEPAM [Concomitant]
     Indication: SEDATIVE THERAPY
     Dosage: UNK, UNKNOWN
     Route: 065

REACTIONS (3)
  - ABDOMINAL HERNIA [None]
  - DIARRHOEA [None]
  - VOMITING [None]
